FAERS Safety Report 8188338-6 (Version None)
Quarter: 2012Q1

REPORT INFORMATION
  Report Type: 
  Country: None (occurrence: None)
  Receive Date: 20120221
  Receipt Date: 20110427
  Transmission Date: 20120608
  Serious: Yes (Hospitalization)
  Sender: FDA-Public Use
  Company Number: PHHY2011US35018

PATIENT
  Age: 66 Year
  Sex: Female

DRUGS (9)
  1. TOBI [Suspect]
     Indication: PNEUMONIA
     Dosage: 300 MG, QD, INHALATION ; 300 MG, INHALATION
     Route: 055
     Dates: start: 20101001
  2. TOBI [Suspect]
     Indication: MYCOBACTERIAL INFECTION
     Dosage: 300 MG, QD, INHALATION ; 300 MG, INHALATION
     Route: 055
     Dates: start: 20101001
  3. TOBI [Suspect]
     Indication: PNEUMONIA
     Dosage: 300 MG, QD, INHALATION ; 300 MG, INHALATION
     Route: 055
     Dates: start: 20110216
  4. TOBI [Suspect]
     Indication: MYCOBACTERIAL INFECTION
     Dosage: 300 MG, QD, INHALATION ; 300 MG, INHALATION
     Route: 055
     Dates: start: 20110216
  5. OMEPRAZOLE [Concomitant]
  6. ADVAIR HFA [Concomitant]
  7. PREDNISOLONE [Concomitant]
  8. METFORMIN HCL [Concomitant]
  9. AZITHROMYCIN [Concomitant]

REACTIONS (1)
  - PNEUMONIA [None]
